FAERS Safety Report 18621844 (Version 1)
Quarter: 2020Q4

REPORT INFORMATION
  Report Type: Spontaneous
  Country: FR (occurrence: FR)
  Receive Date: 20201216
  Receipt Date: 20201216
  Transmission Date: 20210114
  Serious: Yes (Other)
  Sender: FDA-Public Use
  Company Number: FR-AUROBINDO-AUR-APL-2020-060913

PATIENT
  Age: 70 Year
  Sex: Female

DRUGS (2)
  1. AMOXICILLIN. [Suspect]
     Active Substance: AMOXICILLIN
     Indication: BRONCHOPNEUMOPATHY
     Dosage: UNK
     Route: 048
     Dates: start: 20191029, end: 20191104
  2. ROXITHROMYCIN [Suspect]
     Active Substance: ROXITHROMYCIN
     Indication: BRONCHOPNEUMOPATHY
     Dosage: 150 MILLIGRAM, 1 TOTAL
     Route: 048
     Dates: start: 20191104, end: 20191104

REACTIONS (2)
  - Lip oedema [Recovered/Resolved]
  - Face oedema [Recovered/Resolved]

NARRATIVE: CASE EVENT DATE: 20191105
